FAERS Safety Report 16253001 (Version 2)
Quarter: 2020Q4

REPORT INFORMATION
  Report Type: Spontaneous
  Country: US (occurrence: US)
  Receive Date: 20190429
  Receipt Date: 20201126
  Transmission Date: 20210113
  Serious: No
  Sender: FDA-Public Use
  Company Number: US-SA-2019SA060519

PATIENT

DRUGS (3)
  1. VITAFOL [FOLIC ACID] [Concomitant]
  2. DUPIXENT [Suspect]
     Active Substance: DUPILUMAB
     Indication: ECZEMA
     Dosage: 300 MG, QOW
     Route: 058
     Dates: start: 20200228
  3. DUPIXENT [Suspect]
     Active Substance: DUPILUMAB
     Indication: ASTHMA
     Dosage: 200 MG, QOW
     Route: 058
     Dates: start: 20190228

REACTIONS (3)
  - Asthma [Not Recovered/Not Resolved]
  - Fluid retention [Not Recovered/Not Resolved]
  - Myalgia [Not Recovered/Not Resolved]

NARRATIVE: CASE EVENT DATE: 20190419
